FAERS Safety Report 7350125-6 (Version None)
Quarter: 2011Q1

REPORT INFORMATION
  Report Type: 
  Country: None (occurrence: None)
  Receive Date: 20110314
  Receipt Date: 20110308
  Transmission Date: 20110831
  Serious: Yes (Disabling)
  Sender: FDA-Public Use
  Company Number: A0910221A

PATIENT
  Age: 61 Year
  Sex: Female

DRUGS (12)
  1. DIVALPROEX SODIUM [Concomitant]
  2. SIMVASTATIN [Concomitant]
  3. ADVAIR DISKUS 100/50 [Suspect]
     Indication: CHRONIC OBSTRUCTIVE PULMONARY DISEASE
     Dosage: 1PUFF TWICE PER DAY
     Route: 055
     Dates: start: 20090101
  4. ZOLPIDEM [Concomitant]
  5. NOVOLIN 70/30 [Concomitant]
  6. PREMARIN [Concomitant]
  7. ALBUTEROL [Concomitant]
  8. OXYBUTYNIN [Concomitant]
  9. ALLOPURINOL [Concomitant]
  10. DICYCLOMINE [Concomitant]
  11. RISPERDONE [Concomitant]
  12. ATENOLOL [Concomitant]

REACTIONS (3)
  - EMOTIONAL DISTRESS [None]
  - DRUG INEFFECTIVE [None]
  - PRODUCT QUALITY ISSUE [None]
